FAERS Safety Report 9950999 (Version 1)
Quarter: 2014Q1

REPORT INFORMATION
  Report Type: Spontaneous
  Country: US (occurrence: US)
  Receive Date: 20140304
  Receipt Date: 20140304
  Transmission Date: 20141002
  Serious: No
  Sender: FDA-Public Use
  Company Number: US-AMGEN-USASP2014006027

PATIENT
  Age: 65 Year
  Sex: Female

DRUGS (3)
  1. ENBREL [Suspect]
     Indication: PRODUCT USED FOR UNKNOWN INDICATION
     Dosage: 50 MG, QWK
     Route: 065
  2. SYNTHROID [Concomitant]
     Dosage: 25 MUG, UNK
  3. DESIPRAMINE [Concomitant]
     Dosage: 50 MG, UNK

REACTIONS (1)
  - Pain in extremity [Unknown]
